FAERS Safety Report 9267577 (Version 1)
Quarter: 2013Q2

REPORT INFORMATION
  Report Type: Spontaneous
  Country: US (occurrence: US)
  Receive Date: 20130502
  Receipt Date: 20130502
  Transmission Date: 20140414
  Serious: No
  Sender: FDA-Public Use
  Company Number: US-009507513-1305USA000547

PATIENT
  Age: 66 Year
  Sex: Male

DRUGS (9)
  1. COSOPT [Suspect]
     Indication: GLAUCOMA
     Dosage: ONCE
     Route: 047
     Dates: start: 20130426, end: 20130426
  2. AMARYL [Concomitant]
     Dosage: UNK
  3. ASPIRIN [Concomitant]
     Dosage: UNK
  4. AVALIDE [Concomitant]
     Dosage: UNK
  5. UBIDECARENONE [Concomitant]
     Dosage: UNK
  6. LANTUS [Concomitant]
     Dosage: UNK
  7. LIPITOR [Concomitant]
     Dosage: UNK
  8. TRAMADOL HYDROCHLORIDE [Concomitant]
     Dosage: UNK
  9. VICODIN [Concomitant]
     Dosage: UNK

REACTIONS (4)
  - Ocular hyperaemia [Recovered/Resolved]
  - Lacrimation increased [Recovered/Resolved]
  - Eye pruritus [Recovered/Resolved]
  - Eye irritation [Recovered/Resolved]
